FAERS Safety Report 14312716 (Version 1)
Quarter: 2017Q4

REPORT INFORMATION
  Report Type: Report from Study
  Country: US (occurrence: US)
  Receive Date: 20171221
  Receipt Date: 20171221
  Transmission Date: 20180321
  Serious: Yes (Hospitalization)
  Sender: FDA-Public Use
  Company Number: US-GILEAD-2017-0311944

PATIENT
  Age: 76 Year
  Sex: Female

DRUGS (13)
  1. FENOFIBRATE. [Concomitant]
     Active Substance: FENOFIBRATE
     Dates: start: 20131015
  2. IRBESARTAN. [Concomitant]
     Active Substance: IRBESARTAN
     Dates: start: 20131015
  3. INVOKANA [Concomitant]
     Active Substance: CANAGLIFLOZIN
     Dates: start: 20131015
  4. OMEPRAZOLE                         /00661202/ [Concomitant]
     Active Substance: OMEPRAZOLE SODIUM
     Dates: start: 20131015
  5. AMBRISENTAN [Suspect]
     Active Substance: AMBRISENTAN
     Indication: PULMONARY ARTERIAL HYPERTENSION
     Dosage: 5 MG, QD
     Route: 065
     Dates: start: 20170306
  6. VENLAFAXINE                        /01233802/ [Concomitant]
     Active Substance: VENLAFAXINE HYDROCHLORIDE
     Dates: start: 20131015
  7. VENTAVIS [Concomitant]
     Active Substance: ILOPROST
     Dates: start: 20131015
  8. ASPIRIN                            /00002701/ [Concomitant]
     Active Substance: ASPIRIN
     Dates: start: 20131015
  9. METFORMIN [Concomitant]
     Active Substance: METFORMIN HYDROCHLORIDE
     Dates: start: 20131015
  10. LOSARTAN. [Concomitant]
     Active Substance: LOSARTAN
     Dates: start: 20131015
  11. REVATIO [Concomitant]
     Active Substance: SILDENAFIL CITRATE
     Dates: start: 20131015
  12. ATORVASTATIN                       /01326102/ [Concomitant]
     Active Substance: ATORVASTATIN
     Dates: start: 20131015
  13. PREDNISONE                         /00044702/ [Concomitant]
     Active Substance: PREDNISONE
     Dates: start: 20131015

REACTIONS (1)
  - Chronic obstructive pulmonary disease [Recovered/Resolved]

NARRATIVE: CASE EVENT DATE: 20171213
